FAERS Safety Report 8004522-6 (Version None)
Quarter: 2011Q4

REPORT INFORMATION
  Report Type: 
  Country: None (occurrence: None)
  Receive Date: 20111221
  Receipt Date: 20111221
  Transmission Date: 20120403
  Serious: Yes (Hospitalization)
  Sender: FDA-Public Use
  Company Number: None

PATIENT
  Age: 70 Year
  Sex: Male
  Weight: 78.3 kg

DRUGS (10)
  1. COMBIVENT [Concomitant]
  2. ASPIRIN [Suspect]
     Indication: CEREBROVASCULAR ACCIDENT
     Dosage: 81 MG DAILY PO CHRONIC
     Route: 048
  3. IRON SULFATETHIAMIN COMPOUND TAB [Concomitant]
  4. LISINOPRIL [Concomitant]
  5. FLOMAX [Concomitant]
  6. TIMOPTIC SLN [Concomitant]
  7. NORVASC [Concomitant]
  8. M.V.I. [Concomitant]
  9. COREG [Concomitant]
  10. LIPITOR [Concomitant]

REACTIONS (2)
  - DUODENAL ULCER HAEMORRHAGE [None]
  - URINARY TRACT INFECTION [None]
